FAERS Safety Report 23534923 (Version 2)
Quarter: 2024Q1

REPORT INFORMATION
  Report Type: Spontaneous
  Country: US (occurrence: US)
  Receive Date: 20240217
  Receipt Date: 20240221
  Transmission Date: 20240410
  Serious: Yes (Other)
  Sender: FDA-Public Use
  Company Number: US-JNJFOC-20240223941

PATIENT

DRUGS (1)
  1. ERLEADA [Suspect]
     Active Substance: APALUTAMIDE
     Indication: Product used for unknown indication
     Dosage: TAKES 3 TABLETS OF ERLEADA 60MG
     Route: 048

REACTIONS (4)
  - Gastrostomy [Unknown]
  - Product dose omission issue [Unknown]
  - Off label use [Unknown]
  - Product label issue [Unknown]
